FAERS Safety Report 16418757 (Version 1)
Quarter: 2019Q2

REPORT INFORMATION
  Report Type: Spontaneous
  Country: US (occurrence: US)
  Receive Date: 20190612
  Receipt Date: 20190612
  Transmission Date: 20190711
  Serious: No
  Sender: FDA-Public Use
  Company Number: PHEH2019US023811

PATIENT
  Sex: Female

DRUGS (2)
  1. LATANOPROST. [Suspect]
     Active Substance: LATANOPROST
     Indication: GLAUCOMA
  2. LATANOPROST. [Suspect]
     Active Substance: LATANOPROST
     Indication: EYE SWELLING
     Dosage: UNK
     Route: 065

REACTIONS (2)
  - Product quality issue [Unknown]
  - Hypoacusis [Unknown]
